FAERS Safety Report 25148348 (Version 1)
Quarter: 2025Q2

REPORT INFORMATION
  Report Type: Spontaneous
  Country: US (occurrence: US)
  Receive Date: 20250402
  Receipt Date: 20250402
  Transmission Date: 20250716
  Serious: Yes (Hospitalization)
  Sender: CSL BEHRING
  Company Number: US-BEH-2025200464

PATIENT
  Sex: Female

DRUGS (3)
  1. ZEMAIRA [Suspect]
     Active Substance: .ALPHA.1-PROTEINASE INHIBITOR HUMAN
     Indication: Alpha-1 antitrypsin deficiency
     Dosage: (STRENGTH: 4000) 5304 MG, QW
     Route: 042
     Dates: start: 202410
  2. ZEMAIRA [Suspect]
     Active Substance: .ALPHA.1-PROTEINASE INHIBITOR HUMAN
     Dosage: (STRENGTH: 1000) 5304 MG, QW
     Route: 042
     Dates: start: 202410
  3. SALINE [Concomitant]
     Active Substance: SODIUM CHLORIDE

REACTIONS (4)
  - Influenza [Unknown]
  - Dyspnoea [Unknown]
  - Muscle spasms [Unknown]
  - Blood magnesium decreased [Unknown]
